FAERS Safety Report 5694233-4 (Version None)
Quarter: 2008Q2

REPORT INFORMATION
  Report Type: 
  Country: None (occurrence: None)
  Receive Date: 20080403
  Receipt Date: 20080403
  Transmission Date: 20081010
  Serious: Yes (Other)
  Sender: FDA-Public Use
  Company Number: None

PATIENT
  Sex: Male
  Weight: 77.1115 kg

DRUGS (8)
  1. AVELOX [Suspect]
     Indication: SINUSITIS
     Dosage: 400 MG ONCE DAILY ORAL 047
     Route: 048
     Dates: start: 20080301
  2. AZULFIDINE EN-TABS [Concomitant]
  3. IMODIUM [Concomitant]
  4. ELAVIL [Concomitant]
  5. RANITIDINE [Concomitant]
  6. MEDROL [Concomitant]
  7. ASTELIN [Concomitant]
  8. MUCINEX/ALLEGRA [Concomitant]

REACTIONS (1)
  - DYSGEUSIA [None]
